FAERS Safety Report 4968225-4 (Version None)
Quarter: 2006Q2

REPORT INFORMATION
  Report Type: 
  Country: None (occurrence: None)
  Receive Date: 20060410
  Receipt Date: 20060330
  Transmission Date: 20061013
  Serious: Yes (Other)
  Sender: FDA-Public Use
  Company Number: AT-BRISTOL-MYERS SQUIBB COMPANY-13333117

PATIENT
  Age: 19 Year
  Sex: Male

DRUGS (2)
  1. ARIPIPRAZOLE [Suspect]
     Indication: SCHIZOPHRENIA
     Dates: start: 20051201
  2. INDERAL [Concomitant]

REACTIONS (3)
  - INFLUENZA [None]
  - INFLUENZA LIKE ILLNESS [None]
  - NIGHT SWEATS [None]
